FAERS Safety Report 15419985 (Version 1)
Quarter: 2018Q3

REPORT INFORMATION
  Report Type: Spontaneous
  Country: PE (occurrence: PE)
  Receive Date: 20180924
  Receipt Date: 20180924
  Transmission Date: 20181010
  Serious: Yes (Death, Other)
  Sender: FDA-Public Use
  Company Number: PE-BAYER-2018-174350

PATIENT
  Sex: Female

DRUGS (1)
  1. NEXAVAR [Suspect]
     Active Substance: SORAFENIB
     Dosage: 400 MG, BID
     Route: 048
     Dates: start: 20180801

REACTIONS (6)
  - Brain hypoxia [Fatal]
  - Muscular weakness [None]
  - Medical device pain [None]
  - Loss of consciousness [None]
  - Cardio-respiratory arrest [None]
  - Hypoglycaemia [None]

NARRATIVE: CASE EVENT DATE: 20180805
